FAERS Safety Report 5272433-5 (Version None)
Quarter: 2007Q1

REPORT INFORMATION
  Report Type: 
  Country: None (occurrence: None)
  Receive Date: 20070319
  Receipt Date: 20070302
  Transmission Date: 20070707
  Serious: Yes (Other)
  Sender: FDA-Public Use
  Company Number: B0460585A

PATIENT
  Age: 58 Year
  Sex: Male

DRUGS (1)
  1. FLOLAN [Suspect]
     Indication: PULMONARY HYPERTENSION
     Dosage: 2 NG/KG / UNKNOWN / INTRAVENOUS
     Route: 042

REACTIONS (4)
  - BLOOD PRESSURE DECREASED [None]
  - HAEMODIALYSIS [None]
  - HEPATORENAL SYNDROME [None]
  - PULMONARY OEDEMA [None]
